FAERS Safety Report 22393690 (Version 2)
Quarter: 2023Q2

REPORT INFORMATION
  Report Type: Spontaneous
  Country: TW (occurrence: TW)
  Receive Date: 20230601
  Receipt Date: 20230607
  Transmission Date: 20230722
  Serious: Yes (Hospitalization)
  Sender: FDA-Public Use
  Company Number: TW-PFIZER INC-202300202551

PATIENT
  Age: 49 Year
  Sex: Male

DRUGS (1)
  1. CIBINQO [Suspect]
     Active Substance: ABROCITINIB
     Indication: Dermatitis atopic
     Dosage: 200 MG, 1X/DAY
     Route: 048
     Dates: start: 202305, end: 2023

REACTIONS (7)
  - Rhabdomyolysis [Unknown]
  - Renal impairment [Recovered/Resolved]
  - Hepatic function abnormal [Recovered/Resolved]
  - Pyrexia [Unknown]
  - Blood creatine phosphokinase increased [Recovered/Resolved]
  - Platelet count decreased [Recovered/Resolved]
  - Tinea pedis [Unknown]

NARRATIVE: CASE EVENT DATE: 20230101
